FAERS Safety Report 7748410-9 (Version None)
Quarter: 2011Q3

REPORT INFORMATION
  Report Type: 
  Country: None (occurrence: None)
  Receive Date: 20110913
  Receipt Date: 20110908
  Transmission Date: 20111222
  Serious: Yes (Other)
  Sender: FDA-Public Use
  Company Number: JP-BRISTOL-MYERS SQUIBB COMPANY-16044711

PATIENT

DRUGS (1)
  1. TAXOL [Suspect]
     Route: 030

REACTIONS (1)
  - AORTIC DISSECTION [None]
